FAERS Safety Report 5149018-4 (Version None)
Quarter: 2006Q4

REPORT INFORMATION
  Report Type: 
  Country: None (occurrence: None)
  Receive Date: 20061113
  Receipt Date: 20060818
  Transmission Date: 20070319
  Serious: Yes (Other)
  Sender: FDA-Public Use
  Company Number: PHNU2006DE02837

PATIENT
  Sex: Male
  Weight: 58 kg

DRUGS (10)
  1. ZOLADEX [Concomitant]
     Indication: PROSTATE CANCER METASTATIC
     Dosage: 3.6 MG, QMO
     Route: 065
     Dates: start: 20040101, end: 20040901
  2. ZOLADEX [Concomitant]
     Route: 065
     Dates: start: 20060601, end: 20061001
  3. DOCETAXEL [Concomitant]
     Indication: PROSTATE CANCER METASTATIC
     Dosage: 65 MG/M2, TIW
     Route: 065
     Dates: start: 20040901, end: 20050501
  4. DOCETAXEL [Concomitant]
     Dosage: 65 MG/M2, TIW
     Route: 065
     Dates: start: 20060101, end: 20060301
  5. ESTRAMUSTINE [Concomitant]
     Indication: PROSTATE CANCER METASTATIC
     Dosage: 840 MG/DAY
     Route: 065
     Dates: start: 20050501, end: 20051201
  6. ESTRAMUSTINE [Concomitant]
     Dosage: 840 MG/DAY
     Route: 065
     Dates: start: 20060101, end: 20060301
  7. MITOXANTRONE [Concomitant]
     Indication: PROSTATE CANCER METASTATIC
     Dosage: 12 MG/M2, UNK
     Route: 065
     Dates: start: 20060401
  8. CASODEX [Concomitant]
     Indication: PROSTATE CANCER METASTATIC
     Route: 065
     Dates: start: 20060601, end: 20061001
  9. ZOMETA [Suspect]
     Indication: METASTASES TO BONE
     Dosage: 4 MG, QMO
     Route: 042
     Dates: start: 20040101, end: 20050401
  10. ZOMETA [Suspect]
     Dosage: 4 MG, QMO
     Route: 042
     Dates: start: 20050701

REACTIONS (4)
  - BIOPSY SITE UNSPECIFIED ABNORMAL [None]
  - DENTAL TREATMENT [None]
  - OSTEONECROSIS [None]
  - PAIN IN JAW [None]
